FAERS Safety Report 5501711-7 (Version None)
Quarter: 2007Q4

REPORT INFORMATION
  Report Type: 
  Country: None (occurrence: None)
  Receive Date: 20071026
  Receipt Date: 20071026
  Transmission Date: 20080405
  Serious: Yes (Death, Hospitalization)
  Sender: FDA-Public Use
  Company Number: None

PATIENT
  Sex: Male
  Weight: 79.8 kg

DRUGS (1)
  1. ALIMTA [Suspect]
     Dosage: 975 MG
     Dates: start: 20070301

REACTIONS (9)
  - DIFFUSE ALVEOLAR DAMAGE [None]
  - EMPHYSEMA [None]
  - LUNG CONSOLIDATION [None]
  - LUNG DISORDER [None]
  - LUNG INFILTRATION [None]
  - PLEURAL ADHESION [None]
  - PULMONARY FIBROSIS [None]
  - RADIATION PNEUMONITIS [None]
  - SILICOSIS [None]
